FAERS Safety Report 6310853-8 (Version None)
Quarter: 2009Q3

REPORT INFORMATION
  Report Type: 
  Country: None (occurrence: None)
  Receive Date: 20090810
  Receipt Date: 20090804
  Transmission Date: 20100115
  Serious: Yes (Other)
  Sender: FDA-Public Use
  Company Number: 200814455

PATIENT
  Sex: Female
  Weight: 136.0791 kg

DRUGS (2)
  1. VIVAGLOBIN [Suspect]
     Indication: IMMUNODEFICIENCY COMMON VARIABLE
     Dosage: (43 ML 1X/WEEK SUBCUTANEOUS)
     Route: 058
     Dates: start: 20081211
  2. VIVAGLOBIN [Suspect]
     Indication: IMMUNODEFICIENCY COMMON VARIABLE
     Dosage: (43 ML 1X/WEEK SUBCUTANEOUS)
     Route: 058
     Dates: start: 20081219

REACTIONS (3)
  - MENINGITIS ASEPTIC [None]
  - REFUSAL OF TREATMENT BY PATIENT [None]
  - THROMBOSIS [None]
